FAERS Safety Report 7714973-2 (Version None)
Quarter: 2011Q3

REPORT INFORMATION
  Report Type: 
  Country: None (occurrence: None)
  Receive Date: 20110829
  Receipt Date: 20110503
  Transmission Date: 20111222
  Serious: Yes (Other)
  Sender: FDA-Public Use
  Company Number: US-ASTRAZENECA-2011SE25588

PATIENT
  Age: 48 Year
  Sex: Female
  Weight: 77.1 kg

DRUGS (1)
  1. VIMOVO [Suspect]
     Route: 048

REACTIONS (2)
  - CARDIAC FAILURE CONGESTIVE [None]
  - CHRONIC OBSTRUCTIVE PULMONARY DISEASE [None]
